FAERS Safety Report 8523270-7 (Version None)
Quarter: 2012Q3

REPORT INFORMATION
  Report Type: 
  Country: None (occurrence: None)
  Receive Date: 20120720
  Receipt Date: 20120710
  Transmission Date: 20120928
  Serious: Yes (Other)
  Sender: FDA-Public Use
  Company Number: US-JNJFOC-20120705230

PATIENT
  Sex: Female
  Weight: 61.69 kg

DRUGS (3)
  1. PROZAC [Concomitant]
     Indication: DEPRESSION
     Dosage: 30MG/20MG DAILY
     Route: 048
     Dates: start: 20020101
  2. DURAGESIC-100 [Suspect]
     Indication: PAIN
     Route: 062
     Dates: start: 20120601
  3. VALIUM [Concomitant]
     Indication: ANXIETY
     Route: 048
     Dates: start: 20020101

REACTIONS (6)
  - RHEUMATOID ARTHRITIS [None]
  - INCORRECT DRUG ADMINISTRATION DURATION [None]
  - PRODUCT QUALITY ISSUE [None]
  - FOOT FRACTURE [None]
  - WRONG TECHNIQUE IN DRUG USAGE PROCESS [None]
  - PRODUCT PACKAGING ISSUE [None]
